FAERS Safety Report 10058175 (Version 2)
Quarter: 2014Q2

REPORT INFORMATION
  Report Type: Spontaneous
  Country: US (occurrence: US)
  Receive Date: 20140404
  Receipt Date: 20140506
  Transmission Date: 20141212
  Serious: No
  Sender: FDA-Public Use
  Company Number: US-PFIZER INC-2014094758

PATIENT
  Age: 81 Year
  Sex: Female
  Weight: 74.83 kg

DRUGS (5)
  1. LYRICA [Suspect]
     Indication: FIBROMYALGIA
     Dosage: 100 MG, 1X/DAY
     Route: 048
     Dates: end: 201401
  2. LYRICA [Suspect]
     Indication: TRIGEMINAL NEURALGIA
     Dosage: 100 MG, 2X/DAY
     Dates: start: 201401, end: 20140325
  3. LYRICA [Suspect]
     Dosage: UNK
  4. FLEXERIL [Concomitant]
     Dosage: UNK
  5. NADOLOL [Concomitant]
     Indication: HYPERTENSION
     Dosage: UNK

REACTIONS (5)
  - Pruritus [Unknown]
  - Erythema [Unknown]
  - Contusion [Unknown]
  - Drug ineffective [Unknown]
  - Scratch [Unknown]
